FAERS Safety Report 8287080-0 (Version None)
Quarter: 2012Q2

REPORT INFORMATION
  Report Type: 
  Country: None (occurrence: None)
  Receive Date: 20120416
  Receipt Date: 20110830
  Transmission Date: 20120825
  Serious: No
  Sender: FDA-Public Use
  Company Number: US-ALLERGAN-1111602US

PATIENT
  Age: 75 Year
  Sex: Female

DRUGS (2)
  1. ZYMAXID [Suspect]
     Indication: CATARACT OPERATION
     Dosage: 1 GTT, BID
     Route: 047
     Dates: start: 20110810, end: 20110818
  2. ZYMAXID [Suspect]
     Dosage: 1 GTT, BID
     Route: 047
     Dates: start: 20110727, end: 20110803

REACTIONS (1)
  - ABDOMINAL PAIN UPPER [None]
